FAERS Safety Report 13768970 (Version 2)
Quarter: 2018Q3

REPORT INFORMATION
  Report Type: Spontaneous
  Country: US (occurrence: US)
  Receive Date: 20170719
  Receipt Date: 20180717
  Transmission Date: 20181010
  Serious: No
  Sender: FDA-Public Use
  Company Number: US-BAUSCH-BL-2016-015506

PATIENT
  Age: 41 Year
  Sex: Female

DRUGS (4)
  1. XIFAXAN [Suspect]
     Active Substance: RIFAXIMIN
     Indication: DIARRHOEA
     Route: 048
     Dates: start: 20160628
  2. XIFAXAN [Suspect]
     Active Substance: RIFAXIMIN
     Indication: FATIGUE
  3. XIFAXAN [Suspect]
     Active Substance: RIFAXIMIN
     Indication: DIZZINESS
  4. XIFAXAN [Suspect]
     Active Substance: RIFAXIMIN
     Indication: NAUSEA

REACTIONS (3)
  - Headache [Not Recovered/Not Resolved]
  - Drug ineffective for unapproved indication [Not Recovered/Not Resolved]
  - Off label use [Not Recovered/Not Resolved]

NARRATIVE: CASE EVENT DATE: 20160628
